FAERS Safety Report 7693029-1 (Version None)
Quarter: 2011Q3

REPORT INFORMATION
  Report Type: 
  Country: None (occurrence: None)
  Receive Date: 20110816
  Receipt Date: 20110809
  Transmission Date: 20111222
  Serious: Yes (Hospitalization)
  Sender: FDA-Public Use
  Company Number: 1006803

PATIENT
  Age: 41 Year
  Sex: Female

DRUGS (4)
  1. EPIRUBICIN HYDROCHLORIDE [Suspect]
     Indication: T-CELL LYMPHOMA
  2. VINCRISTINE SULFATE [Suspect]
     Indication: T-CELL LYMPHOMA
  3. CYCLOPHOSPHAMIDE [Suspect]
     Indication: T-CELL LYMPHOMA
  4. PREDNISOLONE [Suspect]
     Indication: T-CELL LYMPHOMA

REACTIONS (3)
  - ACUTE MYELOID LEUKAEMIA [None]
  - NO THERAPEUTIC RESPONSE [None]
  - LEUKAEMIA CUTIS [None]
